FAERS Safety Report 5529010-8 (Version None)
Quarter: 2007Q4

REPORT INFORMATION
  Report Type: 
  Country: None (occurrence: None)
  Receive Date: 20071129
  Receipt Date: 20071122
  Transmission Date: 20080405
  Serious: Yes (Other)
  Sender: FDA-Public Use
  Company Number: PHBS2007FI19832

PATIENT
  Age: 80 Year
  Sex: Female

DRUGS (4)
  1. CLONAZEPAM [Concomitant]
  2. ALENDRONATE SODIUM [Concomitant]
  3. ZOPICLONE [Concomitant]
  4. DICLOFENAC SODIUM [Suspect]
     Indication: ARTHROPATHY

REACTIONS (5)
  - BLOOD BILIRUBIN INCREASED [None]
  - HEPATOCELLULAR DAMAGE [None]
  - JAUNDICE [None]
  - LOSS OF CONSCIOUSNESS [None]
  - TRANSAMINASES INCREASED [None]
